FAERS Safety Report 14989314 (Version 3)
Quarter: 2019Q1

REPORT INFORMATION
  Report Type: Report from Study
  Country: US (occurrence: US)
  Receive Date: 20180608
  Receipt Date: 20190208
  Transmission Date: 20190417
  Serious: Yes (Hospitalization, Other)
  Sender: FDA-Public Use
  Company Number: US-INTERCEPT-CTOCA2018000876

PATIENT

DRUGS (19)
  1. ABILIFY [Concomitant]
     Active Substance: ARIPIPRAZOLE
     Indication: DEPRESSION
     Dosage: 5 MG, QD
     Route: 048
     Dates: start: 2016
  2. CARDIZEM CD [Concomitant]
     Active Substance: DILTIAZEM HYDROCHLORIDE
     Indication: ANGINA PECTORIS
     Dosage: 120 MG, QD
     Route: 048
     Dates: start: 2012
  3. SIMVASTATIN. [Concomitant]
     Active Substance: SIMVASTATIN
     Indication: HYPERLIPIDAEMIA
     Dosage: 40 MG, QD
     Route: 048
     Dates: start: 20171010
  4. LEVOTHYROXINE SODIUM. [Concomitant]
     Active Substance: LEVOTHYROXINE SODIUM
     Indication: HYPOTHYROIDISM
     Dosage: 150 MCG, QD
     Route: 048
     Dates: start: 2016
  5. PLAVIX [Concomitant]
     Active Substance: CLOPIDOGREL BISULFATE
     Indication: CORONARY ARTERIAL STENT INSERTION
     Dosage: 75 MG, QD
     Route: 048
     Dates: start: 2008
  6. HYDROCODONE BITARTRATE AND ACETAMINOPHEN [Concomitant]
     Active Substance: ACETAMINOPHEN\HYDROCODONE BITARTRATE
     Indication: INTERVERTEBRAL DISC DEGENERATION
     Dosage: UNK TABLET, QID
     Route: 048
     Dates: start: 20170710
  7. ISOSORBIDE MONONITRATE. [Concomitant]
     Active Substance: ISOSORBIDE MONONITRATE
     Indication: ANGINA PECTORIS
     Dosage: 60 MG, QD
     Route: 048
     Dates: start: 2015
  8. NITROSTAT [Concomitant]
     Active Substance: NITROGLYCERIN
     Indication: ANGINA PECTORIS
     Dosage: 0.4 MG, PRN
     Route: 060
     Dates: start: 1997
  9. VITAMIN B12 [Concomitant]
     Active Substance: CYANOCOBALAMIN
     Indication: IRON DEFICIENCY ANAEMIA
     Dosage: 2500 MCG, QD
     Route: 048
     Dates: start: 20170214
  10. ASPIRIN. [Concomitant]
     Active Substance: ASPIRIN
     Indication: TRANSIENT ISCHAEMIC ATTACK
     Dosage: 325 MG, QD
     Route: 048
     Dates: start: 2010
  11. BUTRANS [Concomitant]
     Active Substance: BUPRENORPHINE
     Indication: SPINAL COLUMN STENOSIS
     Dosage: 20 MCG, QW
     Route: 062
     Dates: start: 2016
  12. CARVEDILOL. [Concomitant]
     Active Substance: CARVEDILOL
     Indication: CORONARY ARTERY DISEASE
     Dosage: 12.5 MG, BID
     Route: 048
     Dates: start: 2015
  13. CYCLOBENZAPRINE HCL [Concomitant]
     Active Substance: CYCLOBENZAPRINE HYDROCHLORIDE
     Indication: SPINAL COLUMN STENOSIS
     Dosage: 10 MG, PRN
     Route: 048
     Dates: start: 2016
  14. VITAMIN D [Concomitant]
     Active Substance: CHOLECALCIFEROL
     Indication: VITAMIN D DEFICIENCY
     Dosage: 2000 IU, QD
     Route: 048
     Dates: start: 201704
  15. LISINOPRIL. [Concomitant]
     Active Substance: LISINOPRIL
     Indication: HYPERTENSION
     Dosage: 20 MG, QD
     Route: 048
     Dates: start: 20180508
  16. OBETICHOLIC ACID [Suspect]
     Active Substance: OBETICHOLIC ACID
     Indication: NON-ALCOHOLIC STEATOHEPATITIS
     Dosage: 10 MG, QD
     Route: 048
     Dates: start: 20170920, end: 20180609
  17. PROTONIX [Concomitant]
     Active Substance: PANTOPRAZOLE SODIUM
     Indication: GASTROOESOPHAGEAL REFLUX DISEASE
     Dosage: 40 MG, QD
     Route: 048
     Dates: start: 2012
  18. REFRESH [Concomitant]
     Active Substance: UNSPECIFIED INGREDIENT
     Indication: DRY EYE
     Dosage: 1 GTT, QID
     Route: 047
     Dates: start: 20170919
  19. LEXAPRO [Concomitant]
     Active Substance: ESCITALOPRAM OXALATE
     Indication: DEPRESSION
     Dosage: 10 MG, QD
     Route: 048
     Dates: start: 2012

REACTIONS (1)
  - Hypertension [Not Recovered/Not Resolved]

NARRATIVE: CASE EVENT DATE: 20180527
